FAERS Safety Report 25461739 (Version 1)
Quarter: 2025Q2

REPORT INFORMATION
  Report Type: Spontaneous
  Country: NZ (occurrence: None)
  Receive Date: 20250619
  Receipt Date: 20250619
  Transmission Date: 20250717
  Serious: Yes (Hospitalization)
  Sender: FDA-CTU
  Company Number: None

PATIENT
  Age: 42 Year
  Sex: Female
  Weight: 69 kg

DRUGS (1)
  1. ESCITALOPRAM [Suspect]
     Active Substance: ESCITALOPRAM OXALATE
     Indication: Depression
     Dates: start: 20120601

REACTIONS (9)
  - Withdrawal syndrome [None]
  - Dizziness [None]
  - Gait disturbance [None]
  - Headache [None]
  - Akathisia [None]
  - Migraine [None]
  - Insomnia [None]
  - Depression [None]
  - Anxiety [None]
